FAERS Safety Report 4837550-X (Version None)
Quarter: 2005Q4

REPORT INFORMATION
  Report Type: 
  Country: None (occurrence: None)
  Receive Date: 20051123
  Receipt Date: 20051123
  Transmission Date: 20060501
  Serious: Yes (Hospitalization)
  Sender: FDA-Public Use
  Company Number: None

PATIENT
  Age: 54 Year
  Sex: Male
  Weight: 60 kg

DRUGS (11)
  1. TACROLIMUS [Suspect]
     Indication: IMMUNOSUPPRESSION
     Dosage: 3MG PO BID  (TOTAL 4 DOSES)
     Route: 048
     Dates: start: 20050621, end: 20050623
  2. TACROLIMUS [Suspect]
     Indication: LUNG TRANSPLANT
     Dosage: 3MG PO BID  (TOTAL 4 DOSES)
     Route: 048
     Dates: start: 20050621, end: 20050623
  3. AZATHIOPRINE [Concomitant]
  4. LANSOPRAZOLE [Concomitant]
  5. INSULIN [Concomitant]
  6. VANCOMYCIN [Concomitant]
  7. ITRACONAZOLE [Concomitant]
  8. METRONIDAZOLE [Concomitant]
  9. PREDNISONE [Concomitant]
  10. PHENYLEPHRINE [Concomitant]
  11. VALACYCLOVIR HCL [Concomitant]

REACTIONS (3)
  - DRUG INTERACTION [None]
  - DRUG TOXICITY [None]
  - RENAL FAILURE ACUTE [None]
